FAERS Safety Report 26020427 (Version 1)
Quarter: 2025Q4

REPORT INFORMATION
  Report Type: Spontaneous
  Country: US (occurrence: US)
  Receive Date: 20251110
  Receipt Date: 20251110
  Transmission Date: 20260118
  Serious: No
  Sender: GALPHARM INTERNATIONAL
  Company Number: US-PERRIGO-25US010305

PATIENT

DRUGS (1)
  1. POLYETHYLENE GLYCOL 3350 [Suspect]
     Active Substance: POLYETHYLENE GLYCOL 3350
     Indication: Constipation
     Dosage: 17 G, QD PRN
     Route: 048
     Dates: end: 20250817

REACTIONS (2)
  - Expired product administered [Recovered/Resolved]
  - Foreign body ingestion [Recovered/Resolved]

NARRATIVE: CASE EVENT DATE: 20250728
